FAERS Safety Report 9167204 (Version 1)
Quarter: 2013Q1

REPORT INFORMATION
  Report Type: Spontaneous
  Country: GB (occurrence: None)
  Receive Date: 20130307
  Receipt Date: 20130307
  Transmission Date: 20140127
  Serious: Yes (Other)
  Sender: FDA-Public Use
  Company Number: GER/UKI/13/0028316

PATIENT
  Age: 34 Year
  Sex: Male
  Weight: 50.8 kg

DRUGS (6)
  1. LAMOTRIGINE (LAMOTRIGINE) [Suspect]
     Indication: EPILEPSY
     Route: 048
     Dates: start: 20130101
  2. MONTELUKAST [Concomitant]
  3. PARACETAMOL (PARACETAMOL) [Concomitant]
  4. PREDNISOLONE (PREDNISOLONE) [Concomitant]
  5. SALBUTAMOL (SALBUTAMOL) [Concomitant]
  6. SERETIDE (SERETIDE) [Concomitant]

REACTIONS (3)
  - Ataxia [None]
  - Insomnia [None]
  - Mood swings [None]
